FAERS Safety Report 18896577 (Version 2)
Quarter: 2021Q2

REPORT INFORMATION
  Report Type: Spontaneous
  Country: US (occurrence: US)
  Receive Date: 20210215
  Receipt Date: 20210518
  Transmission Date: 20210717
  Serious: Yes (Other)
  Sender: FDA-Public Use
  Company Number: US-GLAXOSMITHKLINE-US2021GSK041733

PATIENT
  Sex: Male

DRUGS (5)
  1. RANITIDINE. [Suspect]
     Active Substance: RANITIDINE
     Indication: ADVERSE REACTION
     Dosage: 300 MG, QD
     Route: 065
     Dates: start: 201003, end: 202008
  2. RANITIDINE. [Suspect]
     Active Substance: RANITIDINE
     Indication: ADVERSE REACTION
     Dosage: 300 MG, QD
     Route: 065
     Dates: start: 201003, end: 202008
  3. RANITIDINE CAPSULE [Suspect]
     Active Substance: RANITIDINE
     Indication: ADVERSE REACTION
     Dosage: 300 MG, QD
     Route: 065
     Dates: start: 201003, end: 202008
  4. ZANTAC [Suspect]
     Active Substance: RANITIDINE HYDROCHLORIDE
     Indication: ADVERSE REACTION
     Dosage: UNKNOWN AT THIS TIME PRESCRIPTION
     Route: 065
     Dates: start: 2012, end: 2012
  5. RANITIDINE. [Suspect]
     Active Substance: RANITIDINE
     Indication: ADVERSE REACTION
     Dosage: 300 MG, QD
     Route: 065
     Dates: start: 201003, end: 202008

REACTIONS (2)
  - Pancreatic carcinoma [Unknown]
  - Renal cancer [Unknown]
